FAERS Safety Report 10217142 (Version 2)
Quarter: 2014Q3

REPORT INFORMATION
  Report Type: Report from Study
  Country: FR (occurrence: FR)
  Receive Date: 20140604
  Receipt Date: 20140707
  Transmission Date: 20150326
  Serious: Yes (Other)
  Sender: FDA-Public Use
  Company Number: PHHY2014FR066848

PATIENT
  Age: 69 Year
  Sex: Male

DRUGS (1)
  1. EXTAVIA [Suspect]
     Active Substance: INTERFERON BETA-1B
     Indication: MULTIPLE SCLEROSIS
     Dosage: 1 ML, QOD

REACTIONS (10)
  - Oedema peripheral [Unknown]
  - Secondary progressive multiple sclerosis [Recovering/Resolving]
  - Renal disorder [Unknown]
  - Multiple sclerosis relapse [Recovering/Resolving]
  - Drug administered at inappropriate site [Unknown]
  - Gait disturbance [Unknown]
  - Chills [Unknown]
  - Skin discolouration [Unknown]
  - Nasopharyngitis [Unknown]
  - Multiple sclerosis [Recovering/Resolving]

NARRATIVE: CASE EVENT DATE: 20140522
